FAERS Safety Report 15333630 (Version 1)
Quarter: 2018Q3

REPORT INFORMATION
  Report Type: Spontaneous
  Country: DE (occurrence: DE)
  Receive Date: 20180830
  Receipt Date: 20180830
  Transmission Date: 20181010
  Serious: Yes (Hospitalization, Other)
  Sender: FDA-Public Use
  Company Number: PHHY2018DE079224

PATIENT

DRUGS (2)
  1. CARBOPLATIN. [Suspect]
     Active Substance: CARBOPLATIN
     Indication: NASOPHARYNGEAL CANCER
     Dosage: UNAVAILABLE
     Route: 065
  2. FLUOROURACIL. [Suspect]
     Active Substance: FLUOROURACIL
     Indication: NASOPHARYNGEAL CANCER
     Dosage: UNK
     Route: 065

REACTIONS (9)
  - Pemphigoid [Unknown]
  - Hyponatraemia [Recovering/Resolving]
  - Pyrexia [Unknown]
  - Skin lesion [Recovered/Resolved]
  - Cardiovascular disorder [Unknown]
  - Malignant neoplasm progression [Unknown]
  - Substance-induced psychotic disorder [Unknown]
  - Streptococcal infection [Unknown]
  - Candida infection [Unknown]

NARRATIVE: CASE EVENT DATE: 201504
